FAERS Safety Report 8082776-8 (Version None)
Quarter: 2012Q1

REPORT INFORMATION
  Report Type: 
  Country: None (occurrence: None)
  Receive Date: 20120127
  Receipt Date: 20110209
  Transmission Date: 20120608
  Serious: Yes (Other)
  Sender: FDA-Public Use
  Company Number: US-ABBOTT-11P-163-0704042-00

PATIENT
  Age: 27 Year
  Sex: Female
  Weight: 105.33 kg

DRUGS (3)
  1. HUMIRA [Suspect]
     Indication: CROHN'S DISEASE
     Route: 058
     Dates: start: 20081201, end: 20101001
  2. YASMIN [Concomitant]
     Indication: CONTRACEPTION
  3. VITAMIN B-12 [Concomitant]
     Indication: VITAMIN SUPPLEMENTATION
     Route: 050

REACTIONS (3)
  - MULTIPLE SCLEROSIS [None]
  - FATIGUE [None]
  - NEUROLOGICAL SYMPTOM [None]
